FAERS Safety Report 6419208-9 (Version None)
Quarter: 2009Q4

REPORT INFORMATION
  Report Type: 
  Country: None (occurrence: None)
  Receive Date: 20091028
  Receipt Date: 20091028
  Transmission Date: 20100525
  Serious: Yes (Hospitalization)
  Sender: FDA-Public Use
  Company Number: None

PATIENT
  Sex: Male
  Weight: 44.6 kg

DRUGS (4)
  1. ONCASPAR [Suspect]
     Indication: NON-HODGKIN'S LYMPHOMA
     Dosage: 3750 IU ONCE IV OVER 1 HR IV DRIP
     Route: 041
     Dates: start: 20090930, end: 20090930
  2. PREDNISONE [Concomitant]
  3. DAUNOMYCIN [Concomitant]
  4. IT MTX [Concomitant]

REACTIONS (9)
  - ABDOMINAL PAIN [None]
  - COLD SWEAT [None]
  - DIZZINESS [None]
  - FEELING COLD [None]
  - HYPERAMMONAEMIA [None]
  - LACTIC ACIDOSIS [None]
  - ORTHOSTATIC HYPOTENSION [None]
  - PULMONARY EMBOLISM [None]
  - SHOCK [None]
